FAERS Safety Report 11709772 (Version 2)
Quarter: 2015Q4

REPORT INFORMATION
  Report Type: Spontaneous
  Country: US (occurrence: US)
  Receive Date: 20151104
  Receipt Date: 20151110
  Transmission Date: 20160304
  Serious: No
  Sender: FDA-Public Use
  Company Number: US-ELI_LILLY_AND_COMPANY-US201106002249

PATIENT
  Sex: Female

DRUGS (7)
  1. RESTORIL [Concomitant]
     Active Substance: TEMAZEPAM
     Dosage: UNK, QD
  2. GEODON [Concomitant]
     Active Substance: ZIPRASIDONE HYDROCHLORIDE\ZIPRASIDONE MESYLATE
  3. FORTEO [Suspect]
     Active Substance: TERIPARATIDE
     Indication: OSTEOPOROSIS
     Dosage: 20 UG, QD
     Dates: start: 201104, end: 2011
  4. FORTEO [Suspect]
     Active Substance: TERIPARATIDE
     Dosage: 20 UG, QD
     Dates: start: 2011
  5. WELLBUTRIN [Concomitant]
     Active Substance: BUPROPION HYDROCHLORIDE
     Dosage: UNK, QD
  6. NUVIGIL [Concomitant]
     Active Substance: ARMODAFINIL
     Dosage: UNK, QD
  7. ZOCOR [Concomitant]
     Active Substance: SIMVASTATIN
     Dosage: UNK, QD

REACTIONS (9)
  - Thoracic vertebral fracture [Unknown]
  - Urinary tract infection [Unknown]
  - Pyrexia [Unknown]
  - Nausea [Unknown]
  - Muscle spasms [Unknown]
  - Feeling abnormal [Unknown]
  - Back pain [Not Recovered/Not Resolved]
  - Arthropathy [Unknown]
  - Malaise [Unknown]
